FAERS Safety Report 22599003 (Version 1)
Quarter: 2023Q2

REPORT INFORMATION
  Report Type: Spontaneous
  Country: RO (occurrence: None)
  Receive Date: 20230614
  Receipt Date: 20230614
  Transmission Date: 20230722
  Serious: Yes (Death, Hospitalization)
  Sender: FDA-Public Use
  Company Number: 2023A134666

PATIENT

DRUGS (1)
  1. BUDESONIDE\FORMOTEROL\GLYCOPYRRONIUM [Suspect]
     Active Substance: BUDESONIDE\FORMOTEROL\GLYCOPYRRONIUM
     Indication: Chronic obstructive pulmonary disease
     Dosage: 1X120D
     Route: 055

REACTIONS (5)
  - Cerebrovascular disorder [Fatal]
  - Cataract [Fatal]
  - COVID-19 [Fatal]
  - General physical health deterioration [Fatal]
  - Cardiac disorder [Fatal]
